FAERS Safety Report 18341453 (Version 1)
Quarter: 2020Q4

REPORT INFORMATION
  Report Type: Other
  Country: CN (occurrence: CN)
  Receive Date: 20201004
  Receipt Date: 20201004
  Transmission Date: 20210113
  Serious: Yes (Other)
  Sender: FDA-Public Use
  Company Number: CN-JIANGSU HENGRUI MEDICINE CO., LTD.-2092393

PATIENT
  Age: 30 Year
  Sex: Male
  Weight: 60 kg

DRUGS (4)
  1. IRINOTECAN HYDROCHLORIDE INJECTION, 20 MG/ML (2 ML AND 5 ML VIALS) (AN [Suspect]
     Active Substance: IRINOTECAN HYDROCHLORIDE
     Indication: PANCREATIC CARCINOMA
     Route: 041
     Dates: start: 20200707, end: 20200707
  2. CALCIUM FOLINATE INJECTION [Suspect]
     Active Substance: LEUCOVORIN CALCIUM
     Route: 041
     Dates: start: 20200707, end: 20200707
  3. OXALIPLATIN FOR INJECTION [Suspect]
     Active Substance: OXALIPLATIN
     Route: 041
     Dates: start: 20200707, end: 20200707
  4. FLUOROURACIL FOR INJECTION [Suspect]
     Active Substance: FLUOROURACIL
     Route: 041
     Dates: start: 20200707, end: 20200707

REACTIONS (1)
  - Amaurosis [Recovering/Resolving]

NARRATIVE: CASE EVENT DATE: 20200707
